FAERS Safety Report 18538026 (Version 2)
Quarter: 2020Q4

REPORT INFORMATION
  Report Type: Spontaneous
  Country: US (occurrence: US)
  Receive Date: 20201123
  Receipt Date: 20201209
  Transmission Date: 20210114
  Serious: Yes (Other)
  Sender: FDA-Public Use
  Company Number: US-BEH-2020125272

PATIENT
  Age: 53 Year
  Sex: Female

DRUGS (14)
  1. HAEGARDA [Suspect]
     Active Substance: HUMAN C1-ESTERASE INHIBITOR
     Indication: HEREDITARY ANGIOEDEMA
     Dosage: 3000 INTERNATIONAL UNIT, BIW
     Route: 058
     Dates: start: 2019
  2. HYDROCHLOROTHIAZIDE. [Concomitant]
     Active Substance: HYDROCHLOROTHIAZIDE
     Route: 065
  3. VENTOLIN HFA [Concomitant]
     Active Substance: ALBUTEROL SULFATE
     Route: 065
  4. CARBAMAZEPINE. [Concomitant]
     Active Substance: CARBAMAZEPINE
     Route: 065
  5. EPINEPHRINE. [Concomitant]
     Active Substance: EPINEPHRINE
     Route: 065
  6. XARELTO [Concomitant]
     Active Substance: RIVAROXABAN
     Route: 065
  7. EPITOL [Concomitant]
     Active Substance: CARBAMAZEPINE
     Route: 065
  8. RANITIDINE HCL [Concomitant]
     Active Substance: RANITIDINE HYDROCHLORIDE
     Route: 065
  9. HAEGARDA [Suspect]
     Active Substance: HUMAN C1-ESTERASE INHIBITOR
     Dosage: UNK
     Route: 058
  10. LIDOCAINE;PRILOCAINE [Concomitant]
     Route: 065
  11. HAEGARDA [Suspect]
     Active Substance: HUMAN C1-ESTERASE INHIBITOR
     Indication: PROPHYLAXIS
  12. HAEGARDA [Suspect]
     Active Substance: HUMAN C1-ESTERASE INHIBITOR
     Indication: HEREDITARY ANGIOEDEMA
     Dosage: 4000 INTERNATIONAL UNIT, BIW (2 X 2000)
     Route: 058
     Dates: start: 2019
  13. HAEGARDA [Suspect]
     Active Substance: HUMAN C1-ESTERASE INHIBITOR
     Indication: PROPHYLAXIS
     Dosage: UNK
     Route: 058
  14. FIRAZYR [Concomitant]
     Active Substance: ICATIBANT ACETATE
     Route: 065

REACTIONS (24)
  - Pruritus [Unknown]
  - Wound haemorrhage [Unknown]
  - Circumstance or information capable of leading to medication error [Unknown]
  - Dry skin [Unknown]
  - Dizziness [Unknown]
  - Urge incontinence [Unknown]
  - Fatigue [Unknown]
  - Contusion [Unknown]
  - No adverse event [Unknown]
  - Renal pain [Unknown]
  - Arthritis [Unknown]
  - Head injury [Unknown]
  - Headache [Unknown]
  - Memory impairment [Unknown]
  - Peripheral swelling [Unknown]
  - Gait disturbance [Unknown]
  - Hereditary angioedema [Unknown]
  - Thrombosis [Unknown]
  - Wound [Unknown]
  - Wound complication [Unknown]
  - Wound secretion [Unknown]
  - Muscle spasms [Unknown]
  - Fall [Unknown]
  - Pollakiuria [Unknown]

NARRATIVE: CASE EVENT DATE: 202011
